FAERS Safety Report 5015106-6 (Version None)
Quarter: 2006Q2

REPORT INFORMATION
  Report Type: 
  Country: None (occurrence: None)
  Receive Date: 20060530
  Receipt Date: 20060518
  Transmission Date: 20061013
  Serious: Yes (Hospitalization)
  Sender: FDA-Public Use
  Company Number: 2006-01231

PATIENT
  Age: 55 Year
  Sex: Female

DRUGS (3)
  1. VELCADE [Suspect]
     Indication: MULTIPLE MYELOMA
     Dosage: 1.30 MG/MG, INTRAVENOUS
     Route: 042
     Dates: start: 20060501, end: 20060518
  2. DOXIL [Concomitant]
  3. DECTANCYL (DEXAMETHASONE ACETATE) [Concomitant]

REACTIONS (4)
  - AMYOTROPHY [None]
  - CSF PROTEIN INCREASED [None]
  - EXTENSOR PLANTAR RESPONSE [None]
  - NEUROPATHY [None]
